FAERS Safety Report 25203086 (Version 5)
Quarter: 2025Q4

REPORT INFORMATION
  Report Type: Report from Study
  Country: CO (occurrence: CO)
  Receive Date: 20250416
  Receipt Date: 20251025
  Transmission Date: 20260117
  Serious: Yes (Hospitalization, Other)
  Sender: AMGEN
  Company Number: CO-AMGEN-COLSL2023104303

PATIENT
  Age: 65 Year
  Sex: Male

DRUGS (5)
  1. VECTIBIX [Suspect]
     Active Substance: PANITUMUMAB
     Indication: Colorectal cancer metastatic
     Dosage: 372 MILLIGRAM, Q2WK
     Route: 040
     Dates: start: 20230413, end: 202309
  2. VECTIBIX [Suspect]
     Active Substance: PANITUMUMAB
     Dosage: 100 MILLIGRAM, Q2WK
     Route: 040
     Dates: start: 202310
  3. VECTIBIX [Suspect]
     Active Substance: PANITUMUMAB
     Dosage: 100 MILLIGRAM, Q2WK, REFORMULATED
     Route: 040
     Dates: start: 2024
  4. VECTIBIX [Suspect]
     Active Substance: PANITUMUMAB
     Dosage: UNK UNK, Q2WK
     Route: 040
     Dates: start: 20250805, end: 20250805
  5. VECTIBIX [Suspect]
     Active Substance: PANITUMUMAB
     Dosage: UNK UNK, Q2WK (REFORMULATION)
     Route: 040
     Dates: start: 20251007

REACTIONS (5)
  - Urinary tract infection [Not Recovered/Not Resolved]
  - Rash [Not Recovered/Not Resolved]
  - Stomatitis [Recovered/Resolved]
  - Dry skin [Recovered/Resolved]
  - Weight decreased [Recovering/Resolving]

NARRATIVE: CASE EVENT DATE: 20230101
